FAERS Safety Report 8034112-0 (Version None)
Quarter: 2012Q1

REPORT INFORMATION
  Report Type: 
  Country: None (occurrence: None)
  Receive Date: 20120110
  Receipt Date: 20120105
  Transmission Date: 20120608
  Serious: Yes (Hospitalization, Other)
  Sender: FDA-Public Use
  Company Number: CA-ABBOTT-11P-028-0861538-00

PATIENT
  Age: 11 Year
  Sex: Female
  Weight: 35 kg

DRUGS (10)
  1. REMIFENTANIL [Interacting]
     Indication: THYROGLOSSAL CYST EXCISION
     Route: 042
  2. DIMENHYDRINATE [Interacting]
     Indication: PROPHYLAXIS OF NAUSEA AND VOMITING
  3. ROCURONIUM BROMIDE [Interacting]
     Indication: THYROGLOSSAL CYST EXCISION
     Route: 042
  4. RINGER'S [Concomitant]
     Indication: PRODUCT USED FOR UNKNOWN INDICATION
  5. SEVOFLURANE [Suspect]
     Indication: THYROGLOSSAL CYST EXCISION
     Dosage: LIQUID FOR INHALATION ONCE
     Route: 055
  6. SEVOFLURANE [Interacting]
     Indication: INDUCTION AND MAINTENANCE OF ANAESTHESIA
  7. NITROUS OXIDE [Concomitant]
     Indication: INDUCTION OF ANAESTHESIA
  8. DEXAMETHASONE ACETATE [Interacting]
     Indication: PROPHYLAXIS OF NAUSEA AND VOMITING
  9. OXYGEN [Concomitant]
     Indication: INDUCTION AND MAINTENANCE OF ANAESTHESIA
  10. ONDANSETRON [Interacting]
     Indication: PROPHYLAXIS OF NAUSEA AND VOMITING

REACTIONS (3)
  - DRUG INTERACTION [None]
  - ELECTROCARDIOGRAM QT PROLONGED [None]
  - VENTRICULAR TACHYCARDIA [None]
